FAERS Safety Report 4816529-8 (Version None)
Quarter: 2005Q4

REPORT INFORMATION
  Report Type: 
  Country: None (occurrence: None)
  Receive Date: 20051101
  Receipt Date: 20050930
  Transmission Date: 20060501
  Serious: Yes (Other)
  Sender: FDA-Public Use
  Company Number: PHBS2005IE14467

PATIENT
  Age: 62 Year
  Sex: Male

DRUGS (4)
  1. ZOMETA [Suspect]
     Indication: MULTIPLE MYELOMA
     Dosage: 4 MG, QMO
     Dates: start: 20040701, end: 20050301
  2. IDARUBICIN HCL [Concomitant]
     Dosage: 10 MG/M2 X 4/7
     Route: 065
     Dates: start: 20041221, end: 20050101
  3. DEXAMETHASONE [Concomitant]
     Dosage: 40 MG X 4/7
     Route: 065
     Dates: start: 20041221, end: 20050101
  4. METHOTREXATE [Concomitant]
     Route: 065

REACTIONS (3)
  - COAGULOPATHY [None]
  - DEEP VEIN THROMBOSIS [None]
  - OSTEONECROSIS [None]
